FAERS Safety Report 8398479-6 (Version None)
Quarter: 2012Q2

REPORT INFORMATION
  Report Type: 
  Country: None (occurrence: None)
  Receive Date: 20120531
  Receipt Date: 20120525
  Transmission Date: 20120825
  Serious: Yes (Death, Hospitalization, Other)
  Sender: FDA-Public Use
  Company Number: US-ROCHE-1037245

PATIENT
  Sex: Male
  Weight: 92.2 kg

DRUGS (20)
  1. PREDNISONE TAB [Concomitant]
     Route: 048
  2. PRAVASTATIN [Concomitant]
     Route: 048
  3. LASIX [Concomitant]
     Route: 048
  4. COMPAZINE [Concomitant]
     Route: 048
  5. MAG OXIDE [Concomitant]
     Route: 048
  6. ERGOCALCIFEROL [Concomitant]
     Route: 048
  7. TRAMADOL HCL [Concomitant]
     Route: 048
  8. METROGEL [Concomitant]
  9. TARCEVA [Suspect]
     Indication: BILE DUCT CANCER
     Route: 048
     Dates: start: 20111031, end: 20111201
  10. AVASTIN [Suspect]
     Indication: BILE DUCT CANCER
     Route: 042
     Dates: start: 20111031, end: 20111204
  11. PRILOSEC [Concomitant]
     Route: 048
  12. METFORMIN HCL [Concomitant]
     Route: 048
  13. ALLOPURINOL [Concomitant]
     Route: 048
  14. ALDACTONE [Concomitant]
     Route: 048
  15. DOCUSATE SODIUM [Concomitant]
     Route: 048
  16. BARIUM SULFATE [Concomitant]
     Route: 048
  17. CIPROFLOXACIN HCL [Concomitant]
     Route: 048
  18. OXYCODONE HYDROCHLORIDE [Concomitant]
     Dosage: 5-325 MG
     Route: 048
  19. LOVENOX [Concomitant]
     Dosage: 100 MG/ML
     Route: 058
  20. TOPROL-XL [Concomitant]
     Route: 048

REACTIONS (6)
  - DECREASED APPETITE [None]
  - HEPATIC FAILURE [None]
  - HEPATIC ENCEPHALOPATHY [None]
  - BILE DUCT CANCER [None]
  - RASH [None]
  - DIARRHOEA [None]
